FAERS Safety Report 5133146-3 (Version None)
Quarter: 2006Q4

REPORT INFORMATION
  Report Type: 
  Country: None (occurrence: None)
  Receive Date: 20061018
  Receipt Date: 20061002
  Transmission Date: 20070319
  Serious: Yes (Other)
  Sender: FDA-Public Use
  Company Number: DSA_61221_2006

PATIENT
  Age: 15 Year

DRUGS (1)
  1. DIHYDERGOT [Suspect]
     Indication: INCORRECT DOSE ADMINISTERED
     Dosage: DF UNK PO
     Route: 048

REACTIONS (2)
  - HALLUCINATION [None]
  - OVERDOSE [None]
